FAERS Safety Report 18226526 (Version 5)
Quarter: 2021Q3

REPORT INFORMATION
  Report Type: Report from Study
  Country: ES (occurrence: ES)
  Receive Date: 20200903
  Receipt Date: 20210702
  Transmission Date: 20211014
  Serious: Yes (Hospitalization)
  Sender: FDA-Public Use
  Company Number: ES-SA-2020SA235835

PATIENT
  Age: 37 Year
  Sex: Male
  Weight: 85 kg

DRUGS (20)
  1. CEMIPLIMAB [Suspect]
     Active Substance: CEMIPLIMAB
     Indication: LYMPHOMA
     Dosage: 250 MG, QOW
     Route: 042
     Dates: start: 20200827, end: 20200827
  2. METILPREDNISOLONA [METHYLPREDNISOLONE] [Concomitant]
     Active Substance: METHYLPREDNISOLONE
     Indication: PROPHYLAXIS
     Dosage: 100 MG, 1X
     Route: 042
     Dates: start: 20200827, end: 20200827
  3. DEXCHLORPHENIRAMINE [Concomitant]
     Active Substance: DEXCHLORPHENIRAMINE
     Indication: PROPHYLAXIS
     Dosage: 5 MG, 1X
     Route: 042
     Dates: start: 20200828, end: 20200828
  4. METHYLPREDNISOLONE. [Concomitant]
     Active Substance: METHYLPREDNISOLONE
     Indication: PROPHYLAXIS
     Dosage: 100 MG, 1X
     Route: 042
     Dates: start: 20200828, end: 20200828
  5. FOSTER [PIROXICAM] [Concomitant]
     Indication: PROPHYLAXIS
     Dosage: UNK
     Route: 048
     Dates: start: 2018
  6. DEXCLORFENIRAMINA [Concomitant]
     Active Substance: DEXCHLORPHENIRAMINE
     Indication: PROPHYLAXIS
     Dosage: 5 MG, 1X
     Route: 042
     Dates: start: 20200827, end: 20200827
  7. RANITIDINE. [Concomitant]
     Active Substance: RANITIDINE
     Indication: PROPHYLAXIS
     Dosage: 50 MG, 1X
     Route: 042
     Dates: start: 20200828, end: 20200828
  8. PARACETAMOL [Concomitant]
     Active Substance: ACETAMINOPHEN
     Indication: PROPHYLAXIS
     Dosage: UNK
     Route: 048
     Dates: start: 2018
  9. PARACETAMOL [Concomitant]
     Active Substance: ACETAMINOPHEN
     Dosage: 1 G, 1X
     Route: 048
     Dates: start: 20200827, end: 20200827
  10. MONTELUKAST [Concomitant]
     Active Substance: MONTELUKAST SODIUM
     Dosage: 10 MG, 1X
     Route: 048
     Dates: start: 20200828, end: 20200828
  11. PARACETAMOL [Concomitant]
     Active Substance: ACETAMINOPHEN
     Dosage: 1 G, 1X
     Route: 048
     Dates: start: 20200828, end: 20200828
  12. ISATUXIMAB [Suspect]
     Active Substance: ISATUXIMAB
     Indication: LYMPHOMA
     Dosage: 10 MG/KG, QW
     Route: 042
     Dates: start: 20200828, end: 20200828
  13. OMEPRAZOLE. [Concomitant]
     Active Substance: OMEPRAZOLE
     Indication: PROPHYLAXIS
     Dosage: UNK
     Route: 048
     Dates: start: 2019
  14. IPRATROPIUM BROMIDE. [Concomitant]
     Active Substance: IPRATROPIUM BROMIDE
     Indication: PROPHYLAXIS
     Dosage: UNK
     Route: 048
     Dates: start: 2018
  15. SEPTRIN [Concomitant]
     Active Substance: SULFAMETHOXAZOLE\TRIMETHOPRIM
     Indication: PROPHYLAXIS
     Dosage: UNK
     Route: 048
     Dates: start: 2019
  16. RANITIDINA [RANITIDINE] [Concomitant]
     Active Substance: RANITIDINE
     Indication: PROPHYLAXIS
     Dosage: 50 MG, 1X
     Route: 042
     Dates: start: 20200827, end: 20200827
  17. RANITIDINA [RANITIDINE] [Concomitant]
     Active Substance: RANITIDINE
     Dosage: 50 MG, 1X
     Route: 042
     Dates: start: 20200828, end: 20200828
  18. DEXCLORFENIRAMINA [Concomitant]
     Active Substance: DEXCHLORPHENIRAMINE
     Dosage: 5 MG, 1X
     Route: 042
     Dates: start: 20200828, end: 20200828
  19. METILPREDNISOLONA [METHYLPREDNISOLONE] [Concomitant]
     Active Substance: METHYLPREDNISOLONE
     Dosage: 100 MG, 1X
     Route: 042
     Dates: start: 20200828, end: 20200828
  20. MONTELUKAST [Concomitant]
     Active Substance: MONTELUKAST SODIUM
     Indication: PROPHYLAXIS
     Dosage: 10 MG, 1X
     Route: 030
     Dates: start: 20200827, end: 20200827

REACTIONS (1)
  - Visual acuity reduced [Recovered/Resolved]

NARRATIVE: CASE EVENT DATE: 20200830
